FAERS Safety Report 19611368 (Version 3)
Quarter: 2022Q4

REPORT INFORMATION
  Report Type: Report from Study
  Country: US (occurrence: US)
  Receive Date: 20210727
  Receipt Date: 20221003
  Transmission Date: 20230112
  Serious: No
  Sender: FDA-Public Use
  Company Number: US-ACADIA PHARMACEUTICALS INC.-ACA-2021-PIM-002475

PATIENT
  Sex: Male

DRUGS (13)
  1. NUPLAZID [Suspect]
     Active Substance: PIMAVANSERIN TARTRATE
     Dosage: 34 MILLIGRAM, QD
     Route: 048
     Dates: start: 202206
  2. NUPLAZID [Suspect]
     Active Substance: PIMAVANSERIN TARTRATE
     Indication: Parkinson^s disease
     Dosage: 10 MILLIGRAM, QD AT BEDTIME
     Route: 048
     Dates: start: 20210607
  3. NUPLAZID [Suspect]
     Active Substance: PIMAVANSERIN TARTRATE
     Dosage: 10 MILLIGRAM, QD AT NIGHT
     Route: 048
     Dates: start: 20220110
  4. BISOPROLOL FUMARATE [Concomitant]
     Active Substance: BISOPROLOL FUMARATE
  5. CARBIDOPA\LEVODOPA [Concomitant]
     Active Substance: CARBIDOPA\LEVODOPA
  6. CLONAZEPAM [Concomitant]
     Active Substance: CLONAZEPAM
  7. DULOXETINE [Concomitant]
     Active Substance: DULOXETINE
  8. FINASTERIDE [Concomitant]
     Active Substance: FINASTERIDE
  9. MIRTAZAPINE [Concomitant]
     Active Substance: MIRTAZAPINE
  10. PRAVASTATIN [Concomitant]
     Active Substance: PRAVASTATIN
  11. PREVIDENT [Concomitant]
     Active Substance: SODIUM FLUORIDE
  12. SOLIFENACIN [Concomitant]
     Active Substance: SOLIFENACIN
  13. NORTHERA [Concomitant]
     Active Substance: DROXIDOPA

REACTIONS (5)
  - Head injury [Unknown]
  - Product dose omission issue [Unknown]
  - Confusional state [Unknown]
  - Fall [Unknown]
  - Hallucination [Not Recovered/Not Resolved]
